FAERS Safety Report 5485200-4 (Version None)
Quarter: 2007Q4

REPORT INFORMATION
  Report Type: 
  Country: None (occurrence: None)
  Receive Date: 20071015
  Receipt Date: 20071004
  Transmission Date: 20080405
  Serious: No
  Sender: FDA-Public Use
  Company Number: GB-ELI_LILLY_AND_COMPANY-GB200710001713

PATIENT
  Sex: Male

DRUGS (1)
  1. OLANZAPINE [Suspect]
     Dosage: 20 MG, EACH EVENING
     Dates: start: 20070701

REACTIONS (2)
  - ABDOMINAL PAIN [None]
  - EOSINOPHIL COUNT INCREASED [None]
